FAERS Safety Report 13450935 (Version 7)
Quarter: 2017Q4

REPORT INFORMATION
  Report Type: Report from Study
  Country: DE (occurrence: DE)
  Receive Date: 20170418
  Receipt Date: 20171007
  Transmission Date: 20180320
  Serious: Yes (Hospitalization)
  Sender: FDA-Public Use
  Company Number: DE-ROCHE-1917097

PATIENT
  Age: 56 Year
  Sex: Male
  Weight: 85.7 kg

DRUGS (10)
  1. ATEZOLIZUMAB. [Suspect]
     Active Substance: ATEZOLIZUMAB
     Indication: NON-SMALL CELL LUNG CANCER STAGE IV
     Dosage: DATE OF MOST RECENT DOSE 1200 MG : 22/MAR/2017
     Route: 042
     Dates: start: 20161117
  2. RINGERS SOLUTION [Concomitant]
     Active Substance: CALCIUM CHLORIDE\POTASSIUM CHLORIDE\SODIUM CHLORIDE
     Indication: CHEMOTHERAPY
     Route: 065
     Dates: start: 20161117
  3. GRANISETRON [Concomitant]
     Active Substance: GRANISETRON
     Indication: CHEMOTHERAPY
     Route: 065
     Dates: start: 20161117
  4. ACICLOVIR [Concomitant]
     Active Substance: ACYCLOVIR
     Indication: HERPES ZOSTER
     Route: 065
     Dates: start: 20170307
  5. CARBOPLATIN. [Suspect]
     Active Substance: CARBOPLATIN
     Indication: NON-SMALL CELL LUNG CANCER STAGE IV
     Dosage: MOST RECENT DOSE: 595.94 MG ON 22/MAR/2017?TO ACHIEVE AN INITIAL TARGET AREA UNDER THE CONCENTRATION
     Route: 042
     Dates: start: 20161117
  6. TAVANIC [Concomitant]
     Active Substance: LEVOFLOXACIN
     Indication: HERPES ZOSTER
     Route: 065
     Dates: start: 20170307
  7. PACLITAXEL. [Suspect]
     Active Substance: PACLITAXEL
     Indication: NON-SMALL CELL LUNG CANCER STAGE IV
     Dosage: DATE OF MOST RECENT DOSE: 303 MG ON 22/MAR/2017.
     Route: 042
     Dates: start: 20161117
  8. RAMIPRIL. [Concomitant]
     Active Substance: RAMIPRIL
     Indication: HYPERTENSION
     Route: 065
     Dates: start: 201609
  9. CLEMASTIN [Concomitant]
     Active Substance: CLEMASTINE
     Indication: CHEMOTHERAPY
     Route: 065
     Dates: start: 20161117
  10. RANITIDIN [Concomitant]
     Active Substance: RANITIDINE HYDROCHLORIDE
     Indication: CHEMOTHERAPY
     Route: 065
     Dates: start: 20161117

REACTIONS (1)
  - Rash [Recovered/Resolved]

NARRATIVE: CASE EVENT DATE: 20170404
